FAERS Safety Report 8934150 (Version 1)
Quarter: 2012Q4

REPORT INFORMATION
  Report Type: 
  Country: US (occurrence: US)
  Receive Date: 20121129
  Receipt Date: 20121129
  Transmission Date: 20130627
  Serious: No
  Sender: FDA-Public Use
  Company Number: US-GLAXOSMITHKLINE-A0977881A

PATIENT
  Age: 43 Year
  Sex: Female

DRUGS (2)
  1. WELLBUTRIN SR [Suspect]
     Indication: DEPRESSION
     Dosage: 200MG Twice per day
     Route: 048
     Dates: start: 2008
  2. DEXTROAMPHETAMINE [Concomitant]

REACTIONS (2)
  - Depression [Unknown]
  - Drug ineffective [Unknown]
